FAERS Safety Report 5416602-X (Version None)
Quarter: 2007Q3

REPORT INFORMATION
  Report Type: 
  Country: None (occurrence: None)
  Receive Date: 20070816
  Receipt Date: 20070808
  Transmission Date: 20080115
  Serious: Yes (Hospitalization)
  Sender: FDA-Public Use
  Company Number: US-AVENTIS-200717307GDDC

PATIENT
  Age: 56 Year
  Sex: Male
  Weight: 88 kg

DRUGS (3)
  1. DOCETAXEL [Suspect]
     Dosage: DOSE: 173.85 MG TOTAL DOSE GIVEN THIS COURSE
     Route: 042
     Dates: start: 20050831, end: 20050831
  2. CETUXIMAB [Suspect]
     Dosage: DOSE: 3702.5 MG TOTAL DOSE GIVEN THIS COURSE
     Route: 042
     Dates: start: 20050831, end: 20050831
  3. RADIOTHERAPY [Suspect]
     Dosage: DOSE: 60 GY TOTAL DOSE TO DATE

REACTIONS (2)
  - DRY MOUTH [None]
  - DYSPHAGIA [None]
